FAERS Safety Report 12833548 (Version 1)
Quarter: 2016Q4

REPORT INFORMATION
  Report Type: Spontaneous
  Country: US (occurrence: US)
  Receive Date: 20161010
  Receipt Date: 20161010
  Transmission Date: 20170207
  Serious: No
  Sender: FDA-Public Use
  Company Number: US-009507513-1609USA009437

PATIENT
  Sex: Female

DRUGS (1)
  1. NUVARING [Suspect]
     Active Substance: ETHINYL ESTRADIOL\ETONOGESTREL
     Dosage: 0.12MG/0.015 MG/ 3 WEEKS IN PLACE, ONE WEEK RING-FREE INTERVAL
     Route: 067

REACTIONS (4)
  - Product quality issue [Unknown]
  - Device expulsion [Recovered/Resolved]
  - Drug dose omission [Unknown]
  - No adverse event [Unknown]
